FAERS Safety Report 6173439-4 (Version None)
Quarter: 2009Q2

REPORT INFORMATION
  Report Type: 
  Country: None (occurrence: None)
  Receive Date: 20090429
  Receipt Date: 20090429
  Transmission Date: 20091009
  Serious: Yes (Hospitalization)
  Sender: FDA-Public Use
  Company Number: None

PATIENT
  Sex: Male
  Weight: 28.5 kg

DRUGS (4)
  1. CYTARABINE [Suspect]
     Dosage: 2550 MG
  2. DAUNORUBICIN HCL [Suspect]
     Dosage: 159 MG
  3. ETOPOSIDE [Suspect]
     Dosage: 550 MG
  4. MYLOTARG [Suspect]
     Dosage: 3.2 MG

REACTIONS (26)
  - ABDOMINAL DISTENSION [None]
  - ACUTE MYELOID LEUKAEMIA [None]
  - ANAEMIA [None]
  - ASCITES [None]
  - BLOOD LACTATE DEHYDROGENASE INCREASED [None]
  - BRONCHIAL SECRETION RETENTION [None]
  - COAGULOPATHY [None]
  - CONTINUOUS HAEMODIAFILTRATION [None]
  - FLUID OVERLOAD [None]
  - HAEMORRHAGE INTRACRANIAL [None]
  - HEADACHE [None]
  - HEPATOSPLENOMEGALY [None]
  - HYPERTENSION [None]
  - HYPERURICAEMIA [None]
  - HYPOVENTILATION [None]
  - LEUKOCYTOSIS [None]
  - LYMPH NODE PALPABLE [None]
  - METABOLIC DISORDER [None]
  - NEUTROPENIA [None]
  - PAIN [None]
  - PLEURAL EFFUSION [None]
  - PYREXIA [None]
  - RASH [None]
  - RESPIRATORY MONILIASIS [None]
  - THROMBOCYTOPENIA [None]
  - TUMOUR LYSIS SYNDROME [None]
